FAERS Safety Report 5466274-3 (Version None)
Quarter: 2007Q3

REPORT INFORMATION
  Report Type: 
  Country: None (occurrence: None)
  Receive Date: 20070919
  Receipt Date: 20070906
  Transmission Date: 20080115
  Serious: Yes (Life-Threatening, Hospitalization, Disabling, Other)
  Sender: FDA-Public Use
  Company Number: GXKR2007GB07483

PATIENT
  Age: 53 Year
  Sex: Male
  Weight: 100 kg

DRUGS (8)
  1. WARFARIN SODIUM [Suspect]
     Indication: CEREBROVASCULAR ACCIDENT PROPHYLAXIS
     Dosage: ORAL
     Route: 048
     Dates: start: 20050509
  2. ATORVASTATIN CALCIUM [Suspect]
     Indication: HYPERLIPIDAEMIA
     Dosage: 80 MG, QD, ORAL; 20 MG, QD, ORAL
     Route: 048
     Dates: start: 20050901, end: 20060401
  3. ATORVASTATIN CALCIUM [Suspect]
     Indication: HYPERLIPIDAEMIA
     Dosage: 80 MG, QD, ORAL; 20 MG, QD, ORAL
     Route: 048
     Dates: start: 20060401, end: 20070302
  4. ALLOPURINOL [Concomitant]
  5. ASPIRIN [Concomitant]
  6. BENDROFLUMETHIAZIDE (BENDROFLUMETHIAZIDE) [Concomitant]
  7. LANSOPRAZOLE [Concomitant]
  8. NAPROXEN [Concomitant]

REACTIONS (7)
  - DRUG INTERACTION [None]
  - ERYTHEMA [None]
  - RENAL FAILURE ACUTE [None]
  - RESPIRATORY FAILURE [None]
  - RHABDOMYOLYSIS [None]
  - SEPSIS [None]
  - SYSTEMIC INFLAMMATORY RESPONSE SYNDROME [None]
